FAERS Safety Report 23588484 (Version 7)
Quarter: 2025Q2

REPORT INFORMATION
  Report Type: Report from Study
  Country: US (occurrence: US)
  Receive Date: 20240302
  Receipt Date: 20250529
  Transmission Date: 20250716
  Serious: Yes (Hospitalization, Other)
  Sender: TAKEDA
  Company Number: US-TAKEDA-2023TUS095616

PATIENT
  Age: 50 Year
  Sex: Female

DRUGS (3)
  1. VEDOLIZUMAB [Suspect]
     Active Substance: VEDOLIZUMAB
     Indication: Colitis ulcerative
     Dosage: 300 MILLIGRAM, Q4WEEKS
  2. VEDOLIZUMAB [Suspect]
     Active Substance: VEDOLIZUMAB
     Indication: Colitis ulcerative
     Dosage: 108 MILLIGRAM, Q2WEEKS
  3. VEDOLIZUMAB [Suspect]
     Active Substance: VEDOLIZUMAB

REACTIONS (15)
  - Colitis ulcerative [Recovered/Resolved]
  - Victim of spousal abuse [Unknown]
  - Anal incontinence [Unknown]
  - Weight decreased [Unknown]
  - Back disorder [Unknown]
  - Illness [Unknown]
  - Pain [Unknown]
  - Injection site scar [Unknown]
  - Product dose omission issue [Unknown]
  - Stress [Unknown]
  - Anxiety [Unknown]
  - Diarrhoea [Unknown]
  - Defaecation urgency [Unknown]
  - Product distribution issue [Unknown]
  - Dyschezia [Unknown]

NARRATIVE: CASE EVENT DATE: 20230701
